FAERS Safety Report 22385921 (Version 1)
Quarter: 2023Q2

REPORT INFORMATION
  Report Type: Spontaneous
  Country: US (occurrence: US)
  Receive Date: 20230530
  Receipt Date: 20230530
  Transmission Date: 20230722
  Serious: No
  Sender: FDA-Public Use
  Company Number: US-PFIZER INC-PV202300094527

PATIENT
  Sex: Female

DRUGS (2)
  1. IBRANCE [Suspect]
     Active Substance: PALBOCICLIB
     Indication: Leukaemia
     Dosage: UNK (EVERY OTHER DAY OR EVERY OTHER NIGHT)
  2. IBRANCE [Suspect]
     Active Substance: PALBOCICLIB
     Indication: Breast cancer female

REACTIONS (6)
  - White blood cell count decreased [Unknown]
  - Memory impairment [Unknown]
  - Bone pain [Unknown]
  - Feeling abnormal [Unknown]
  - Off label use [Unknown]
  - Off label use [Unknown]
